FAERS Safety Report 9245225 (Version 4)
Quarter: 2013Q4

REPORT INFORMATION
  Report Type: Spontaneous
  Country: US (occurrence: US)
  Receive Date: 20130422
  Receipt Date: 20131007
  Transmission Date: 20140711
  Serious: Yes (Hospitalization, Other)
  Sender: FDA-Public Use
  Company Number: US200911007305

PATIENT
  Age: 64 Year
  Sex: Male
  Weight: 117.01 kg

DRUGS (48)
  1. BYETTA [Suspect]
     Indication: DIABETES MELLITUS
     Route: 058
     Dates: start: 20061116, end: 20071228
  2. EXENATIDE 10MCG PEN, DISPOSABLE DEVICE [Concomitant]
  3. METFORMIN [Concomitant]
     Indication: DIABETES MELLITUS
     Route: 048
     Dates: start: 1995, end: 200712
  4. GLUCOTROL [Concomitant]
     Indication: DIABETES MELLITUS
     Route: 048
     Dates: start: 1995, end: 200712
  5. LIPITOR [Concomitant]
     Indication: BLOOD CHOLESTEROL
     Dates: start: 1995
  6. TYLENOL [Concomitant]
     Indication: INSOMNIA
     Dates: start: 1999
  7. FISH OIL [Concomitant]
     Route: 048
  8. NIACIN [Concomitant]
  9. CARDURA [Concomitant]
     Route: 048
  10. LASIX [Concomitant]
     Route: 048
     Dates: start: 20111101
  11. XANAX [Concomitant]
     Route: 048
  12. DIOVAN [Concomitant]
     Dates: start: 20111025
  13. LANTUS [Concomitant]
     Dosage: 1DF:100 UNIT/ML,20DEC11,08MAY12?01NOV2011
     Route: 058
     Dates: start: 20111025
  14. LISINOPRIL [Concomitant]
     Dates: start: 20120508
  15. SIMVASTATIN [Concomitant]
     Dates: start: 20120808
  16. ASPIRIN [Concomitant]
     Dates: start: 20111025
  17. LIPITOR [Concomitant]
     Route: 048
     Dates: start: 20111025
  18. MAGNESIUM [Concomitant]
     Route: 048
     Dates: start: 20111025
  19. POTASSIUM [Concomitant]
     Route: 048
     Dates: start: 20111025
  20. LOSARTAN POTASSIUM [Concomitant]
     Route: 048
  21. VENTOLIN [Concomitant]
     Dosage: 1DF:2PUFFS EVERY 4HRS
  22. VIAGRA [Concomitant]
     Route: 048
  23. INSULIN [Concomitant]
     Dosage: 1DF:31GX5/16 .5ML
  24. FLUOCINONIDE [Concomitant]
  25. TYLENOL [Concomitant]
     Indication: SLEEP DISORDER
     Route: 048
     Dates: start: 1999
  26. GLUCOPHAGE [Concomitant]
  27. ADVIL [Concomitant]
  28. ALEVE [Concomitant]
  29. IBUPROFEN [Concomitant]
  30. CARDURA [Concomitant]
     Route: 048
  31. LACTULOSE [Concomitant]
     Route: 048
  32. ENALAPRIL [Concomitant]
     Route: 048
  33. PROSCAR [Concomitant]
     Route: 048
  34. CHANTIX [Concomitant]
     Route: 048
  35. LIDEX [Concomitant]
  36. LAMISIL [Concomitant]
  37. KEFLEX [Concomitant]
  38. HUMALOG [Concomitant]
     Dosage: 1DF:100UNITS/1ML
     Route: 058
  39. PERCOCET [Concomitant]
  40. VICODIN [Concomitant]
  41. TEMAZEPAM [Concomitant]
  42. AVANDIA [Concomitant]
     Route: 048
  43. CELEBREX [Concomitant]
     Route: 048
  44. STARLIX [Concomitant]
  45. NIACIN [Concomitant]
     Dosage: 1DF:1TAB
  46. NIACIN [Concomitant]
  47. ALBUTEROL [Concomitant]
  48. PSYLLIUM [Concomitant]

REACTIONS (10)
  - Pancreatitis [Fatal]
  - Cholelithiasis [Recovered/Resolved]
  - Pancreatitis [Recovered/Resolved]
  - Cholecystitis chronic [Unknown]
  - Nephrolithiasis [Unknown]
  - Constipation [Unknown]
  - Abdominal pain [Recovered/Resolved]
  - Renal injury [Unknown]
  - Cataract [Recovering/Resolving]
  - Hypersensitivity [Unknown]
